FAERS Safety Report 5615233-6 (Version None)
Quarter: 2008Q1

REPORT INFORMATION
  Report Type: 
  Country: None (occurrence: None)
  Receive Date: 20080206
  Receipt Date: 20080204
  Transmission Date: 20080703
  Serious: Yes (Other)
  Sender: FDA-Public Use
  Company Number: US-ASTRAZENECA-2008UW02350

PATIENT
  Age: 69 Year
  Sex: Female
  Weight: 59 kg

DRUGS (6)
  1. TOPROL-XL [Suspect]
     Indication: HYPERTENSION
     Route: 048
     Dates: start: 20060801, end: 20071201
  2. TOPROL-XL [Suspect]
     Route: 048
     Dates: start: 20071201
  3. LIPITOR [Concomitant]
  4. THYROID TAB [Concomitant]
  5. FISH OILS [Concomitant]
  6. VITAMIN D3 [Concomitant]

REACTIONS (4)
  - BLOOD PRESSURE INCREASED [None]
  - FLATULENCE [None]
  - HEART RATE INCREASED [None]
  - MALAISE [None]
